FAERS Safety Report 24572494 (Version 1)
Quarter: 2024Q4

REPORT INFORMATION
  Report Type: Spontaneous
  Country: US (occurrence: None)
  Receive Date: 20241101
  Receipt Date: 20241101
  Transmission Date: 20250114
  Serious: Yes (Hospitalization)
  Sender: Public
  Company Number: None

PATIENT
  Age: 56 Year
  Sex: Male

DRUGS (1)
  1. TECFIDERA [Suspect]
     Active Substance: DIMETHYL FUMARATE
     Indication: Multiple sclerosis
     Dosage: FREQUENCY : TWICE A DAY;?

REACTIONS (13)
  - Diarrhoea [None]
  - Tremor [None]
  - Multiple sclerosis [None]
  - Bedridden [None]
  - Migraine [None]
  - Insomnia [None]
  - Pain [None]
  - Gait disturbance [None]
  - Illiteracy [None]
  - Fall [None]
  - Balance disorder [None]
  - Thrombosis [None]
  - Drug ineffective [None]

NARRATIVE: CASE EVENT DATE: 20240801
